FAERS Safety Report 25540925 (Version 2)
Quarter: 2025Q3

REPORT INFORMATION
  Report Type: Other
  Country: US (occurrence: US)
  Receive Date: 20250710
  Receipt Date: 20250731
  Transmission Date: 20251020
  Serious: Yes (Other)
  Sender: MADRIGAL PHARMACEUTICALS
  Company Number: US-MADRIGAL PHARMACEUTICALS, INC-2025REZ7598

PATIENT

DRUGS (13)
  1. REZDIFFRA [Suspect]
     Active Substance: RESMETIROM
     Indication: Metabolic dysfunction-associated steatohepatitis
     Dosage: 80 MILLIGRAM, QD
     Route: 048
     Dates: start: 20250102, end: 202506
  2. ZEPBOUND [Concomitant]
     Active Substance: TIRZEPATIDE
  3. AMBIEN [Concomitant]
     Active Substance: ZOLPIDEM TARTRATE
  4. SERTRALINE [Concomitant]
     Active Substance: SERTRALINE HYDROCHLORIDE
  5. PREGABALIN [Concomitant]
     Active Substance: PREGABALIN
  6. LOSARTAN [Concomitant]
     Active Substance: LOSARTAN
  7. HYDROXYCHLOROQUINE [Concomitant]
     Active Substance: HYDROXYCHLOROQUINE
  8. FLUCONAZOLE [Concomitant]
     Active Substance: FLUCONAZOLE
  9. DULOXETINE [Concomitant]
     Active Substance: DULOXETINE
  10. FAMOTIDINE [Concomitant]
     Active Substance: FAMOTIDINE
  11. DOXEPIN [Concomitant]
     Active Substance: DOXEPIN
  12. COLCHICINE [Concomitant]
     Active Substance: COLCHICINE
  13. CHLORTHALIDONE [Concomitant]
     Active Substance: CHLORTHALIDONE

REACTIONS (1)
  - Hepatic cirrhosis [Not Recovered/Not Resolved]

NARRATIVE: CASE EVENT DATE: 20250101
